FAERS Safety Report 12321630 (Version 1)
Quarter: 2016Q2

REPORT INFORMATION
  Report Type: Spontaneous
  Country: FR (occurrence: FR)
  Receive Date: 20160502
  Receipt Date: 20160502
  Transmission Date: 20160815
  Serious: Yes (Hospitalization)
  Sender: FDA-Public Use
  Company Number: FR-ELI_LILLY_AND_COMPANY-FR201604010533

PATIENT
  Age: 84 Year
  Sex: Male

DRUGS (5)
  1. ERBITUX [Suspect]
     Active Substance: CETUXIMAB
     Indication: PRODUCT USED FOR UNKNOWN INDICATION
     Dosage: UNK UNK, OTHER
     Route: 042
     Dates: start: 20160104, end: 20160104
  2. CISPLATIN. [Suspect]
     Active Substance: CISPLATIN
     Indication: PRODUCT USED FOR UNKNOWN INDICATION
     Dosage: 30 MG, QD
     Route: 042
     Dates: start: 20151130
  3. CISPLATIN. [Suspect]
     Active Substance: CISPLATIN
     Dosage: 30 MG, QD
     Route: 042
     Dates: start: 20160104, end: 20160108
  4. FLUOROURACILE [Suspect]
     Active Substance: FLUOROURACIL
     Indication: PRODUCT USED FOR UNKNOWN INDICATION
     Dosage: 6000 MG, UNKNOWN
     Route: 042
     Dates: start: 20151130
  5. FLUOROURACILE [Suspect]
     Active Substance: FLUOROURACIL
     Dosage: 6000 MG, UNK
     Route: 042
     Dates: start: 20160104, end: 20160108

REACTIONS (7)
  - Septic shock [Unknown]
  - Coronary artery disease [Unknown]
  - Aplastic anaemia [Unknown]
  - Cardiac failure [Unknown]
  - Myocardial ischaemia [Unknown]
  - Ejection fraction decreased [Unknown]
  - Left ventricular dysfunction [Unknown]

NARRATIVE: CASE EVENT DATE: 20160117
